FAERS Safety Report 7673432-6 (Version None)
Quarter: 2011Q3

REPORT INFORMATION
  Report Type: 
  Country: None (occurrence: None)
  Receive Date: 20110810
  Receipt Date: 20110805
  Transmission Date: 20111222
  Serious: Yes (Other)
  Sender: FDA-Public Use
  Company Number: US-PFIZER INC-2011099050

PATIENT
  Sex: Female

DRUGS (7)
  1. CHANTIX [Suspect]
     Dosage: UNK
     Dates: start: 20080910
  2. CYMBALTA [Concomitant]
     Indication: DEPRESSION
     Dosage: UNK
     Dates: start: 20070101
  3. CHANTIX [Suspect]
     Dosage: UNK
     Dates: start: 20090303, end: 20090101
  4. CHANTIX [Suspect]
     Indication: SMOKING CESSATION THERAPY
     Dosage: 0.5 MG, 1 MG, SAMPLE PACK
     Dates: start: 20080801
  5. CHANTIX [Suspect]
     Dosage: UNK, SAMPLE PACK
     Dates: start: 20081001
  6. CHANTIX [Suspect]
     Dosage: UNK, SAMPLE PACK
     Dates: start: 20081101
  7. XANAX [Concomitant]
     Indication: ANXIETY
     Dosage: UNK
     Dates: start: 20070101

REACTIONS (4)
  - DEPRESSION [None]
  - PANIC DISORDER [None]
  - CONVULSION [None]
  - ANXIETY [None]
